FAERS Safety Report 6190519-8 (Version None)
Quarter: 2009Q2

REPORT INFORMATION
  Report Type: 
  Country: None (occurrence: None)
  Receive Date: 20090513
  Receipt Date: 20090513
  Transmission Date: 20091009
  Serious: Yes (Death, Hospitalization)
  Sender: FDA-Public Use
  Company Number: None

PATIENT
  Age: 85 Year
  Sex: Male
  Weight: 91 kg

DRUGS (1)
  1. WARFARIN SODIUM [Suspect]

REACTIONS (1)
  - CEREBRAL HAEMORRHAGE [None]
